FAERS Safety Report 4820808-8 (Version None)
Quarter: 2005Q4

REPORT INFORMATION
  Report Type: 
  Country: None (occurrence: None)
  Receive Date: 20051104
  Receipt Date: 20051031
  Transmission Date: 20060501
  Serious: Yes (Hospitalization)
  Sender: FDA-Public Use
  Company Number: US-JNJFOC-20051100308

PATIENT
  Age: 9 Month
  Sex: Male
  Weight: 8.64 kg

DRUGS (4)
  1. TYLENOL (CAPLET) [Suspect]
     Route: 048
  2. TYLENOL (CAPLET) [Suspect]
     Indication: DRUG USE FOR UNKNOWN INDICATION
     Dosage: 0.75 TEASPOON; ^}24HR {=1 WEEK^
     Route: 048
  3. CONCENTRATED MOTRIN INFANTS' [Suspect]
     Route: 048
  4. CONCENTRATED MOTRIN INFANTS' [Suspect]
     Indication: DRUG USE FOR UNKNOWN INDICATION
     Dosage: 1 TEASPOON; ^ }24 HR {= 1 WEEK^
     Route: 048

REACTIONS (3)
  - INCORRECT DOSE ADMINISTERED [None]
  - PYREXIA [None]
  - RASH [None]
